FAERS Safety Report 22137776 (Version 1)
Quarter: 2023Q1

REPORT INFORMATION
  Report Type: Report from Study
  Country: US (occurrence: US)
  Receive Date: 20230325
  Receipt Date: 20230325
  Transmission Date: 20230417
  Serious: Yes (Other)
  Sender: FDA-Public Use
  Company Number: US-002147023-NVSC2023US063994

PATIENT
  Sex: Female

DRUGS (1)
  1. KISQALI [Suspect]
     Active Substance: RIBOCICLIB
     Indication: Breast cancer
     Dosage: UNK, QD (FOR 2 MONTHS)
     Route: 048

REACTIONS (4)
  - Breast cancer [Unknown]
  - Malignant neoplasm progression [Unknown]
  - Gastrointestinal disorder [Unknown]
  - Dyspepsia [Unknown]
